FAERS Safety Report 5082041-7 (Version None)
Quarter: 2006Q3

REPORT INFORMATION
  Report Type: 
  Country: None (occurrence: None)
  Receive Date: 20060817
  Receipt Date: 20060807
  Transmission Date: 20061208
  Serious: Yes (Hospitalization)
  Sender: FDA-Public Use
  Company Number: PHRM2006FR02302

PATIENT
  Age: 63 Year
  Sex: Female
  Weight: 85 kg

DRUGS (7)
  1. LAMISIL [Suspect]
     Route: 048
     Dates: start: 20041025
  2. LAMISIL [Suspect]
     Route: 048
     Dates: start: 20000422, end: 20020402
  3. ALDACTONE [Concomitant]
  4. RANIPLEX [Concomitant]
  5. ATACAND [Concomitant]
  6. ZANIDIP [Concomitant]
  7. APROVEL [Concomitant]

REACTIONS (3)
  - BURNING SENSATION [None]
  - PAIN IN EXTREMITY [None]
  - PERIPHERAL SENSORIMOTOR NEUROPATHY [None]
